FAERS Safety Report 8001783 (Version 4)
Quarter: 2013Q1

REPORT INFORMATION
  Report Type: Report from Study
  Country: US (occurrence: US)
  Receive Date: 20110622
  Receipt Date: 20130123
  Transmission Date: 20140127
  Serious: Yes (Life-Threatening, Hospitalization, Other)
  Sender: FDA-Public Use
  Company Number: US-ROCHE-783778

PATIENT
  Age: 55 Year
  Sex: Male
  Weight: 98.6 kg

DRUGS (8)
  1. BEVACIZUMAB [Suspect]
     Indication: RENAL CELL CARCINOMA
     Dosage: DAY 1,15, LAST DOSE ADMINISTERED ON 10/JUN/2010
     Route: 042
     Dates: start: 20100107, end: 20100805
  2. SORAFENIB [Suspect]
     Indication: RENAL CELL CARCINOMA
     Dosage: DAYS 1-5, 8-12, 15-19,22-26, LAST DOSE ADMINISTERED ON 15/MAR/2010
     Route: 048
     Dates: start: 20100107, end: 20100805
  3. SORAFENIB [Suspect]
     Route: 065
     Dates: start: 20100624, end: 20100624
  4. SORAFENIB [Suspect]
     Route: 065
     Dates: start: 20100625, end: 20100628
  5. COUMADIN [Suspect]
     Indication: PRODUCT USED FOR UNKNOWN INDICATION
     Route: 065
     Dates: start: 20100623, end: 20100623
  6. COUMADIN [Suspect]
     Route: 065
     Dates: start: 20100624, end: 20100624
  7. COUMADIN [Suspect]
     Route: 065
     Dates: start: 20100625, end: 20100628
  8. LOVENOX [Suspect]
     Indication: PRODUCT USED FOR UNKNOWN INDICATION
     Route: 065
     Dates: start: 20100623, end: 20100628

REACTIONS (11)
  - Embolism [Unknown]
  - Blood creatinine increased [Recovered/Resolved with Sequelae]
  - Ureteric obstruction [Unknown]
  - Haemorrhage urinary tract [Unknown]
  - Myalgia [Recovered/Resolved]
  - Haematuria [Recovered/Resolved]
  - Renal failure acute [Recovered/Resolved]
  - Urinary tract obstruction [Recovered/Resolved]
  - Hyponatraemia [Recovered/Resolved]
  - Abdominal pain [Recovered/Resolved]
  - Anaemia [Recovered/Resolved]
